FAERS Safety Report 9263597 (Version 1)
Quarter: 2013Q2

REPORT INFORMATION
  Report Type: Spontaneous
  Country: US (occurrence: None)
  Receive Date: 20130429
  Receipt Date: 20130429
  Transmission Date: 20140414
  Serious: Yes (Other)
  Sender: FDA-Public Use
  Company Number: None

PATIENT
  Age: 82 Year
  Sex: Male
  Weight: 83.01 kg

DRUGS (1)
  1. AZELASTINE HYDROCHLORIDE [Suspect]
     Indication: UNEVALUABLE EVENT
     Route: 045
     Dates: start: 20130416

REACTIONS (2)
  - Swollen tongue [None]
  - Dysphagia [None]
